FAERS Safety Report 8770475 (Version 2)
Quarter: 2012Q4

REPORT INFORMATION
  Report Type: Report from Study
  Country: US (occurrence: US)
  Receive Date: 20120906
  Receipt Date: 20120911
  Transmission Date: 20130627
  Serious: Yes (Hospitalization)
  Sender: FDA-Public Use
  Company Number: US-JNJFOC-20120901649

PATIENT
  Age: 15 Year
  Sex: Female
  Weight: 39.4 kg

DRUGS (6)
  1. REMICADE [Suspect]
     Indication: CROHN^S DISEASE
     Route: 042
  2. HUMIRA [Concomitant]
  3. ULTRAM [Concomitant]
  4. FERROUS SULFATE [Concomitant]
  5. NEXIUM [Concomitant]
  6. TYLENOL [Concomitant]

REACTIONS (1)
  - Abdominal pain [Recovered/Resolved]
